FAERS Safety Report 24340520 (Version 1)
Quarter: 2024Q3

REPORT INFORMATION
  Report Type: Spontaneous
  Country: US (occurrence: None)
  Receive Date: 20240919
  Receipt Date: 20240919
  Transmission Date: 20241016
  Serious: Yes (Other)
  Sender: Public
  Company Number: None

PATIENT
  Age: 82 Year
  Sex: Male
  Weight: 73.35 kg

DRUGS (1)
  1. NEURACEQ [Suspect]
     Active Substance: FLORBETABEN F-18
     Indication: Dementia Alzheimer^s type
     Dates: start: 20240918, end: 20240918

REACTIONS (4)
  - Dizziness [None]
  - Feeling abnormal [None]
  - Gait disturbance [None]
  - Fatigue [None]

NARRATIVE: CASE EVENT DATE: 20240918
